FAERS Safety Report 18917790 (Version 2)
Quarter: 2021Q1

REPORT INFORMATION
  Report Type: Spontaneous
  Country: US (occurrence: US)
  Receive Date: 20210219
  Receipt Date: 20210315
  Transmission Date: 20210420
  Serious: Yes (Other)
  Sender: FDA-Public Use
  Company Number: US-ALLERGAN-2049644US

PATIENT
  Sex: Female

DRUGS (7)
  1. LINZESS [Suspect]
     Active Substance: LINACLOTIDE
     Indication: IRRITABLE BOWEL SYNDROME
     Dosage: 72 ?G, QAM
     Route: 048
     Dates: start: 2018
  2. LINZESS [Suspect]
     Active Substance: LINACLOTIDE
     Indication: IRRITABLE BOWEL SYNDROME
     Dosage: 145 ?G, QAM
     Route: 048
  3. CLONAZEPAM. [Concomitant]
     Active Substance: CLONAZEPAM
     Indication: ANXIETY
     Dosage: 1 MG, BID
  4. ANORO ELLIPTA [Concomitant]
     Active Substance: UMECLIDINIUM BROMIDE\VILANTEROL TRIFENATATE
     Indication: CHRONIC OBSTRUCTIVE PULMONARY DISEASE
  5. LINZESS [Suspect]
     Active Substance: LINACLOTIDE
     Indication: CONSTIPATION
     Dosage: 2 DF, PRN
     Route: 048
  6. LINZESS [Suspect]
     Active Substance: LINACLOTIDE
     Indication: CONSTIPATION
  7. BIEST [Concomitant]
     Active Substance: ESTRADIOL\ESTRIOL
     Indication: HORMONE REPLACEMENT THERAPY

REACTIONS (12)
  - Cholecystectomy [Recovered/Resolved]
  - Inappropriate schedule of product administration [Unknown]
  - Constipation [Not Recovered/Not Resolved]
  - Drug ineffective [Unknown]
  - Gastrointestinal bacterial overgrowth [Recovered/Resolved]
  - Therapeutic product effect increased [Unknown]
  - Therapy interrupted [Unknown]
  - Abdominal pain [Not Recovered/Not Resolved]
  - Weight decreased [Not Recovered/Not Resolved]
  - Off label use [Unknown]
  - Abdominal distension [Not Recovered/Not Resolved]
  - Diarrhoea [Unknown]

NARRATIVE: CASE EVENT DATE: 2020
